FAERS Safety Report 7900869-X (Version None)
Quarter: 2011Q4

REPORT INFORMATION
  Report Type: 
  Country: None (occurrence: None)
  Receive Date: 20111108
  Receipt Date: 20110906
  Transmission Date: 20120403
  Serious: Yes (Hospitalization)
  Sender: FDA-Public Use
  Company Number: FR-ALVOGEN-2011AL000057

PATIENT
  Age: 85 Year
  Sex: Female

DRUGS (2)
  1. BACTRIM [Suspect]
     Indication: URINARY TRACT INFECTION
  2. FURADANTIN [Suspect]
     Indication: URINARY TRACT INFECTION
     Dosage: 6 DOSAGE FORMS DAILY
     Route: 048
     Dates: start: 20110824, end: 20110826

REACTIONS (6)
  - VOMITING [None]
  - CONDITION AGGRAVATED [None]
  - DIARRHOEA [None]
  - DEHYDRATION [None]
  - VERTIGO [None]
  - NAUSEA [None]
